FAERS Safety Report 9501119 (Version 2)
Quarter: 2013Q4

REPORT INFORMATION
  Report Type: Spontaneous
  Country: US (occurrence: US)
  Receive Date: 20130905
  Receipt Date: 20131112
  Transmission Date: 20140711
  Serious: Yes (Hospitalization, Other)
  Sender: FDA-Public Use
  Company Number: US-UCBSA-096302

PATIENT
  Sex: Female
  Weight: 83.91 kg

DRUGS (15)
  1. CIMZIA [Suspect]
     Indication: CROHN^S DISEASE
     Dates: start: 20110126
  2. CIMZIA [Suspect]
     Indication: CROHN^S DISEASE
  3. AMLODIPINE BESYLATE [Concomitant]
  4. ASPIRIN [Concomitant]
  5. FOLIC ACID [Concomitant]
     Dosage: ONCE DAILY
  6. IRON [Concomitant]
     Dosage: SLOW FE
  7. L-THYROXINE [Concomitant]
  8. METOPROLOL [Concomitant]
  9. PLAVIX [Concomitant]
  10. PENTASA [Concomitant]
     Dosage: 2-4 A DAY
  11. PREVALITE PACKETS [Concomitant]
     Dosage: 1 NIGHTLY
  12. VITAMIN D3 [Concomitant]
     Dosage: 1000 MC
  13. SODIUM BICARBONATE [Concomitant]
  14. ZANTAC [Concomitant]
  15. B12 [Concomitant]

REACTIONS (2)
  - Carpal tunnel syndrome [Not Recovered/Not Resolved]
  - Nerve compression [Unknown]
